FAERS Safety Report 9643189 (Version 1)
Quarter: 2013Q4

REPORT INFORMATION
  Report Type: Spontaneous
  Country: US (occurrence: US)
  Receive Date: 20131024
  Receipt Date: 20131024
  Transmission Date: 20140711
  Serious: No
  Sender: FDA-Public Use
  Company Number: US-GLAXOSMITHKLINE-A1005572A

PATIENT
  Age: 64 Year
  Sex: Female

DRUGS (7)
  1. DUAC [Suspect]
     Indication: SCAR
     Route: 061
     Dates: start: 201210
  2. HYDROCORTISONE [Concomitant]
  3. DIOVAN [Concomitant]
  4. INSULIN [Concomitant]
  5. SYNTHROID [Concomitant]
  6. LIPITOR [Concomitant]
  7. ZOLOFT [Concomitant]

REACTIONS (4)
  - Pruritus [Unknown]
  - Erythema [Unknown]
  - Rash [Unknown]
  - Expired drug administered [Unknown]
